FAERS Safety Report 5281593-1 (Version None)
Quarter: 2007Q1

REPORT INFORMATION
  Report Type: 
  Country: None (occurrence: None)
  Receive Date: 20070330
  Receipt Date: 20070326
  Transmission Date: 20070707
  Serious: Yes (Hospitalization)
  Sender: FDA-Public Use
  Company Number: FR-BRISTOL-MYERS SQUIBB COMPANY-13729967

PATIENT
  Sex: Male
  Weight: 78 kg

DRUGS (4)
  1. APROVEL TABS [Suspect]
     Route: 048
     Dates: start: 20061224
  2. ISOPTIN [Suspect]
     Dates: start: 20061224
  3. LANSOYL [Suspect]
  4. TRINITRINE [Suspect]

REACTIONS (1)
  - HYPOPHOSPHATAEMIA [None]
